FAERS Safety Report 4852258-2 (Version None)
Quarter: 2005Q4

REPORT INFORMATION
  Report Type: 
  Country: None (occurrence: None)
  Receive Date: 20051213
  Receipt Date: 20051104
  Transmission Date: 20060501
  Serious: Yes (Hospitalization, Other)
  Sender: FDA-Public Use
  Company Number: US-MERCK-0511USA00887

PATIENT
  Age: 44 Year
  Sex: Female
  Weight: 70 kg

DRUGS (3)
  1. VIOXX [Suspect]
     Indication: ARTHRITIS
     Route: 048
  2. NEURONTIN [Concomitant]
     Route: 065
     Dates: start: 20020101
  3. MOBIC [Concomitant]
     Route: 065
     Dates: start: 20020101

REACTIONS (8)
  - ADVERSE EVENT [None]
  - ARTHRITIS [None]
  - CEREBROVASCULAR ACCIDENT [None]
  - CHEST PAIN [None]
  - HEADACHE [None]
  - MIGRAINE [None]
  - MUSCULOSKELETAL DISORDER [None]
  - NECK PAIN [None]
